FAERS Safety Report 25400786 (Version 1)
Quarter: 2025Q2

REPORT INFORMATION
  Report Type: Report from Study
  Country: US (occurrence: US)
  Receive Date: 20250605
  Receipt Date: 20250605
  Transmission Date: 20250716
  Serious: Yes (Other)
  Sender: ALEXION PHARMACEUTICALS
  Company Number: US-ASTRAZENECA-202505USA028193US

PATIENT
  Age: 50 Year

DRUGS (1)
  1. STRENSIQ [Suspect]
     Active Substance: ASFOTASE ALFA
     Indication: Phosphorus metabolism disorder
     Dosage: 150 MILLIGRAM, TIW
     Route: 065

REACTIONS (3)
  - Thrombosis [Unknown]
  - Bone pain [Unknown]
  - Pain in extremity [Unknown]
